FAERS Safety Report 4391523-2 (Version None)
Quarter: 2004Q3

REPORT INFORMATION
  Report Type: 
  Country: None (occurrence: None)
  Receive Date: 20040702
  Receipt Date: 20040315
  Transmission Date: 20050211
  Serious: Yes (Hospitalization)
  Sender: FDA-Public Use
  Company Number: 2004UW04977

PATIENT
  Age: 69 Year
  Sex: Female

DRUGS (3)
  1. CRESTOR [Suspect]
  2. TOPROL-XL [Suspect]
  3. DIOVAN [Concomitant]

REACTIONS (3)
  - ABDOMINAL PAIN [None]
  - BLOOD CREATINE PHOSPHOKINASE INCREASED [None]
  - LIVER FUNCTION TEST ABNORMAL [None]
